FAERS Safety Report 5663146-6 (Version None)
Quarter: 2008Q1

REPORT INFORMATION
  Report Type: 
  Country: None (occurrence: None)
  Receive Date: 20080313
  Receipt Date: 20080307
  Transmission Date: 20080703
  Serious: Yes (Life-Threatening, Hospitalization)
  Sender: FDA-Public Use
  Company Number: B0512073A

PATIENT
  Age: 48 Year
  Sex: Female
  Weight: 91 kg

DRUGS (10)
  1. CLAMOXYL [Suspect]
     Indication: PROPHYLAXIS
     Route: 048
     Dates: start: 20071220, end: 20071220
  2. BRICANYL [Concomitant]
     Dosage: .5MG TWICE PER DAY
     Route: 055
  3. PREDNISOLONE [Concomitant]
     Dosage: 30MG PER DAY
     Route: 048
  4. SYMBICORT [Concomitant]
     Route: 055
  5. SPIRIVA [Concomitant]
     Dosage: 18UG PER DAY
     Route: 055
  6. SINGULAIR [Concomitant]
     Dosage: 10MG PER DAY
     Route: 048
  7. FUROSEMIDE [Concomitant]
     Dosage: 40MG PER DAY
     Route: 048
  8. RIGEVIDON [Concomitant]
     Route: 048
  9. ALBUTEROL [Concomitant]
     Route: 055
  10. CAPSICUM [Concomitant]

REACTIONS (5)
  - ANAPHYLACTIC REACTION [None]
  - DYSPNOEA [None]
  - ERYTHEMA [None]
  - HYPOTENSION [None]
  - HYPOXIA [None]
